FAERS Safety Report 11878326 (Version 1)
Quarter: 2015Q4

REPORT INFORMATION
  Report Type: Report from Study
  Country: US (occurrence: US)
  Receive Date: 20151230
  Receipt Date: 20151230
  Transmission Date: 20160305
  Serious: Yes (Other)
  Sender: FDA-Public Use
  Company Number: US-ROCHE-1683660

PATIENT

DRUGS (2)
  1. OMALIZUMAB [Suspect]
     Active Substance: OMALIZUMAB
     Indication: ASTHMA
     Dosage: AT MINIMUM DOSE OF 0.016 MG/KG/IGE (IMMUNOGLOBULIN E) [IU/ML] EVERY 2 OR 4 WEEKS DURING THE 4-5 MONT
     Route: 058
  2. FLUTICASONE PROPIONATE INHALER [Suspect]
     Active Substance: FLUTICASONE PROPIONATE
     Indication: ASTHMA
     Dosage: INHALERS SUFFICIENT TO DELIVER THE REQUIRED 200 MCG OR 500 MCG DAILY BOOST OF FLUTICASONE.
     Route: 045

REACTIONS (2)
  - Anaphylactic reaction [Unknown]
  - VIIth nerve paralysis [Unknown]
